FAERS Safety Report 8056238-8 (Version None)
Quarter: 2012Q1

REPORT INFORMATION
  Report Type: 
  Country: None (occurrence: None)
  Receive Date: 20120119
  Receipt Date: 20120112
  Transmission Date: 20120608
  Serious: Yes (Other)
  Sender: FDA-Public Use
  Company Number: US-GENZYME-MOZO-1000611

PATIENT
  Sex: Female
  Weight: 50.34 kg

DRUGS (6)
  1. MOZOBIL [Suspect]
     Indication: MYELODYSPLASTIC SYNDROME
     Dosage: 440 MCG/KG, QD
     Route: 058
     Dates: start: 20111031, end: 20111104
  2. VIDAZA [Concomitant]
     Indication: MYELODYSPLASTIC SYNDROME
     Dosage: 75 MG/M2, QD
     Route: 058
     Dates: start: 20111031, end: 20111104
  3. NEUPOGEN [Concomitant]
     Indication: MYELODYSPLASTIC SYNDROME
     Dosage: 5 MCG/KG, QD
     Route: 058
     Dates: start: 20111031, end: 20111104
  4. MOZOBIL [Suspect]
     Dosage: 440 MCG/KG, QD
     Route: 058
     Dates: start: 20111205, end: 20111209
  5. NEUPOGEN [Concomitant]
     Dosage: 5 MCG/KG, QD
     Route: 058
     Dates: start: 20111205, end: 20111209
  6. VIDAZA [Concomitant]
     Dosage: 75 MG/M2, QD
     Route: 058
     Dates: start: 20111205, end: 20111209

REACTIONS (5)
  - ANXIETY [None]
  - DECREASED APPETITE [None]
  - NAUSEA [None]
  - INSOMNIA [None]
  - THROMBOCYTOSIS [None]
